FAERS Safety Report 5787542-1 (Version None)
Quarter: 2008Q2

REPORT INFORMATION
  Report Type: 
  Country: None (occurrence: None)
  Receive Date: 20080625
  Receipt Date: 20071001
  Transmission Date: 20081010
  Serious: No
  Sender: FDA-Public Use
  Company Number: US-ASTRAZENECA-2007UW22935

PATIENT
  Age: 1 Year
  Sex: Female
  Weight: 10.4 kg

DRUGS (1)
  1. PULMICORT RESPULES [Suspect]
     Indication: DYSPNOEA
     Route: 055

REACTIONS (1)
  - FAECES DISCOLOURED [None]
